FAERS Safety Report 13572519 (Version 1)
Quarter: 2017Q2

REPORT INFORMATION
  Report Type: Spontaneous
  Country: US (occurrence: US)
  Receive Date: 20170523
  Receipt Date: 20170523
  Transmission Date: 20170830
  Serious: Yes (Other)
  Sender: FDA-Public Use
  Company Number: US-GLAXOSMITHKLINE-US2017GSK076467

PATIENT
  Sex: Female

DRUGS (1)
  1. VENTOLIN HFA [Suspect]
     Active Substance: ALBUTEROL SULFATE
     Indication: DYSPNOEA
     Dosage: UNK, U

REACTIONS (5)
  - Hair growth abnormal [Not Recovered/Not Resolved]
  - Neoplasm malignant [Unknown]
  - Immune system disorder [Not Recovered/Not Resolved]
  - Colon cancer [Unknown]
  - Colectomy [Unknown]

NARRATIVE: CASE EVENT DATE: 1991
